FAERS Safety Report 9675788 (Version 1)
Quarter: 2013Q4

REPORT INFORMATION
  Report Type: Spontaneous
  Country: CN (occurrence: CN)
  Receive Date: 20131107
  Receipt Date: 20131107
  Transmission Date: 20140711
  Serious: Yes (Other)
  Sender: FDA-Public Use
  Company Number: CN-PFIZER INC-2013316341

PATIENT
  Age: 75 Year
  Sex: Male
  Weight: 80 kg

DRUGS (2)
  1. MS CONTIN [Suspect]
     Indication: CANCER PAIN
     Dosage: UNK
  2. MS CONTIN [Suspect]
     Dosage: 40 MG, 2X/DAY
     Route: 048
     Dates: start: 20090102, end: 20090103

REACTIONS (6)
  - Cholangiectasis acquired [Recovering/Resolving]
  - Biliary dilatation [Recovering/Resolving]
  - Pyrexia [Not Recovered/Not Resolved]
  - Abdominal pain upper [Recovering/Resolving]
  - Nausea [Recovering/Resolving]
  - Vomiting [Recovering/Resolving]
